FAERS Safety Report 21220580 (Version 2)
Quarter: 2022Q3

REPORT INFORMATION
  Report Type: Spontaneous
  Country: US (occurrence: None)
  Receive Date: 20220817
  Receipt Date: 20220822
  Transmission Date: 20221027
  Serious: Yes (Other)
  Sender: FDA-Public Use
  Company Number: US-ROCHE-3159934

PATIENT
  Sex: Female
  Weight: 65.830 kg

DRUGS (11)
  1. ALECENSA [Suspect]
     Active Substance: ALECTINIB HYDROCHLORIDE
     Indication: Non-small cell lung cancer
     Dosage: YES
     Route: 048
     Dates: start: 201908
  2. DICLOFENAC SODIUM [Concomitant]
     Active Substance: DICLOFENAC SODIUM
     Indication: Musculoskeletal chest pain
     Route: 061
  3. LIDOCAINE [Concomitant]
     Active Substance: LIDOCAINE
     Indication: Musculoskeletal chest pain
     Dosage: 5% LIDOCAINE PATCH APPLY AS NEEDED FOR RIB PAIN
     Route: 061
  4. TYLENOL [Concomitant]
     Active Substance: ACETAMINOPHEN
     Indication: Pain
  5. CALCIUM\VITAMIN D [Concomitant]
     Active Substance: CALCIUM\VITAMIN D
  6. DICLOFENAC SODIUM [Concomitant]
     Active Substance: DICLOFENAC SODIUM
     Indication: Musculoskeletal chest pain
     Dosage: APPLY TOPICALLY AS NEEDED FOR RIB PAIN
     Route: 061
  7. PREDNISONE [Concomitant]
     Active Substance: PREDNISONE
     Indication: Neck pain
  8. PREDNISONE [Concomitant]
     Active Substance: PREDNISONE
     Indication: Arthralgia
  9. COMPAZINE [Concomitant]
     Active Substance: PROCHLORPERAZINE MALEATE
     Indication: Nausea
  10. COMPAZINE [Concomitant]
     Active Substance: PROCHLORPERAZINE MALEATE
     Indication: Vomiting
  11. XARELTO [Concomitant]
     Active Substance: RIVAROXABAN
     Indication: Thrombosis prophylaxis

REACTIONS (5)
  - Deep vein thrombosis [Recovered/Resolved]
  - Cough [Not Recovered/Not Resolved]
  - Throat irritation [Not Recovered/Not Resolved]
  - Pain [Not Recovered/Not Resolved]
  - Chest injury [Unknown]
